FAERS Safety Report 13548086 (Version 1)
Quarter: 2017Q2

REPORT INFORMATION
  Report Type: Spontaneous
  Country: US (occurrence: US)
  Receive Date: 20170516
  Receipt Date: 20170516
  Transmission Date: 20170830
  Serious: No
  Sender: FDA-Public Use
  Company Number: PHEH2017US013877

PATIENT
  Age: 50 Year
  Sex: Female

DRUGS (1)
  1. GILENYA [Suspect]
     Active Substance: FINGOLIMOD HYDROCHLORIDE
     Indication: PRODUCT USED FOR UNKNOWN INDICATION
     Route: 065

REACTIONS (8)
  - Cervical dysplasia [Unknown]
  - Papilloma viral infection [Unknown]
  - Phobia [Unknown]
  - Lymphocyte count decreased [Unknown]
  - Cough [Unknown]
  - Anxiety [Unknown]
  - Toothache [Unknown]
  - Viral upper respiratory tract infection [Unknown]
